FAERS Safety Report 24027560 (Version 2)
Quarter: 2024Q3

REPORT INFORMATION
  Report Type: Spontaneous
  Country: US (occurrence: US)
  Receive Date: 20240628
  Receipt Date: 20240705
  Transmission Date: 20241016
  Serious: Yes (Other)
  Sender: BRISTOL MYERS SQUIBB
  Company Number: US-BRISTOL-MYERS SQUIBB COMPANY-2024-102787

PATIENT
  Age: 51 Year
  Sex: Female

DRUGS (24)
  1. REVLIMID [Suspect]
     Active Substance: LENALIDOMIDE
     Indication: Plasma cell myeloma
     Route: 048
     Dates: start: 20231213
  2. MIRALAX [Concomitant]
     Active Substance: POLYETHYLENE GLYCOL 3350
     Dosage: 3350 NF
  3. BIFIDOBACTERIUM ANIMALIS LACTIS [Concomitant]
     Active Substance: BIFIDOBACTERIUM ANIMALIS LACTIS
  4. BIFIDOBACTERIUM ANIMALIS LACTIS [Concomitant]
     Active Substance: BIFIDOBACTERIUM ANIMALIS LACTIS
  5. AMITRIPTYLINE [Concomitant]
     Active Substance: AMITRIPTYLINE
  6. CONTRAVE [Concomitant]
     Active Substance: BUPROPION HYDROCHLORIDE\NALTREXONE HYDROCHLORIDE
     Dosage: 8-90 MG
  7. VITAMIN D3 [Concomitant]
     Active Substance: CHOLECALCIFEROL
  8. DARZALEX [Concomitant]
     Active Substance: DARATUMUMAB
  9. DEXAMETHASONE [Concomitant]
     Active Substance: DEXAMETHASONE
  10. IBUPROFEN [Concomitant]
     Active Substance: IBUPROFEN
  11. VITAMIN K2 + D3 [COLECALCIFEROL;MENAQUINONE] [Concomitant]
  12. KYPROLIS [Concomitant]
     Active Substance: CARFILZOMIB
  13. MAGNESIUM [Concomitant]
     Active Substance: MAGNESIUM
  14. MONTELUKAST [Concomitant]
     Active Substance: MONTELUKAST SODIUM
  15. VALACYCLOVIR [Concomitant]
     Active Substance: VALACYCLOVIR HYDROCHLORIDE
  16. ESTRADIOL [Concomitant]
     Active Substance: ESTRADIOL
     Dosage: DIS
  17. ATOVAQUONE [Concomitant]
     Active Substance: ATOVAQUONE
     Dosage: 750/5ML
  18. VELCADE [Concomitant]
     Active Substance: BORTEZOMIB
  19. VITAMIN B12 [Concomitant]
     Active Substance: CYANOCOBALAMIN
  20. TRETINOIN [Concomitant]
     Active Substance: TRETINOIN
  21. MOUNJARO [Concomitant]
     Active Substance: TIRZEPATIDE
     Dosage: 150MG/0.5
  22. OMEPRAZOLE [Concomitant]
     Active Substance: OMEPRAZOLE
  23. ENULOSE [Concomitant]
     Active Substance: LACTULOSE
     Dosage: SOL 10GM/15
  24. ATOVAQUONE [Concomitant]
     Active Substance: ATOVAQUONE

REACTIONS (7)
  - Off label use [Unknown]
  - Thinking abnormal [Unknown]
  - Memory impairment [Unknown]
  - Pyrexia [Recovered/Resolved]
  - Nausea [Recovered/Resolved]
  - Syncope [Recovered/Resolved]
  - Sleep disorder [Unknown]
